FAERS Safety Report 10377630 (Version 1)
Quarter: 2014Q3

REPORT INFORMATION
  Report Type: Spontaneous
  Country: FR (occurrence: FR)
  Receive Date: 20140812
  Receipt Date: 20140812
  Transmission Date: 20150326
  Serious: Yes (Hospitalization)
  Sender: FDA-Public Use
  Company Number: PHHY2014FR094765

PATIENT
  Age: 90 Year
  Sex: Female

DRUGS (18)
  1. LASILIX [Suspect]
     Active Substance: FUROSEMIDE
     Route: 048
     Dates: start: 201208, end: 20140716
  2. ALLOPURINOL. [Concomitant]
     Active Substance: ALLOPURINOL
  3. DOMPERIDONE [Concomitant]
     Active Substance: DOMPERIDONE
  4. MUPIDERM [Concomitant]
     Active Substance: MUPIROCIN
  5. SEPTEAL [Concomitant]
  6. BILASKA [Concomitant]
     Active Substance: BILASTINE
  7. KETODERM [Concomitant]
     Active Substance: KETOCONAZOLE
  8. IBUPROFEN SANDOZ [Suspect]
     Active Substance: IBUPROFEN
     Indication: PAIN
     Route: 048
     Dates: start: 20140618, end: 20140716
  9. BISOPROLOL [Concomitant]
     Active Substance: BISOPROLOL
  10. UVEDOSE [Concomitant]
     Active Substance: CHOLECALCIFEROL
  11. PLAVIX [Concomitant]
     Active Substance: CLOPIDOGREL BISULFATE
  12. SIBELIUM [Concomitant]
     Active Substance: FLUNARIZINE
  13. ESIDREX [Suspect]
     Active Substance: HYDROCHLOROTHIAZIDE
     Route: 048
     Dates: start: 20131009, end: 20140716
  14. SEROPLEX [Concomitant]
     Active Substance: ESCITALOPRAM OXALATE
  15. COVERSYL ARGININE [Suspect]
     Active Substance: PERINDOPRIL ARGININE
     Route: 048
     Dates: start: 201208, end: 20140716
  16. DIFFU K [Concomitant]
     Active Substance: POTASSIUM CHLORIDE
  17. MOPRAL [Concomitant]
     Active Substance: OMEPRAZOLE SODIUM
  18. SPASFON [Concomitant]
     Active Substance: PHLOROGLUCINOL
     Dosage: UNK

REACTIONS (1)
  - Renal failure acute [Recovering/Resolving]

NARRATIVE: CASE EVENT DATE: 20140716
